FAERS Safety Report 7450907-6 (Version None)
Quarter: 2011Q2

REPORT INFORMATION
  Report Type: 
  Country: None (occurrence: None)
  Receive Date: 20110429
  Receipt Date: 20110429
  Transmission Date: 20111010
  Serious: Yes (Other)
  Sender: FDA-Public Use
  Company Number: None

PATIENT
  Age: 50 Year
  Sex: Female

DRUGS (3)
  1. LEVOXYL [Suspect]
  2. LEVOXYL [Suspect]
  3. LEVOXYL [Suspect]
     Dates: start: 20110416

REACTIONS (7)
  - CHILLS [None]
  - ALOPECIA [None]
  - SWELLING FACE [None]
  - DYSPNOEA [None]
  - FATIGUE [None]
  - OEDEMA PERIPHERAL [None]
  - GASTROINTESTINAL DISORDER [None]
